FAERS Safety Report 6985175-2 (Version None)
Quarter: 2010Q3

REPORT INFORMATION
  Report Type: 
  Country: None (occurrence: None)
  Receive Date: 20100915
  Receipt Date: 20100907
  Transmission Date: 20110219
  Serious: Yes (Other)
  Sender: FDA-Public Use
  Company Number: HU-AMGEN-QUU436255

PATIENT
  Sex: Female

DRUGS (1)
  1. NPLATE [Suspect]
     Indication: PRODUCT USED FOR UNKNOWN INDICATION

REACTIONS (3)
  - NEURALGIA [None]
  - PAIN IN EXTREMITY [None]
  - PLATELET COUNT INCREASED [None]
